FAERS Safety Report 5117983-7 (Version None)
Quarter: 2006Q3

REPORT INFORMATION
  Report Type: 
  Country: None (occurrence: None)
  Receive Date: 20060929
  Receipt Date: 20060921
  Transmission Date: 20061208
  Serious: Yes (Life-Threatening, Other)
  Sender: FDA-Public Use
  Company Number: IT-JNJFOC-20060905199

PATIENT
  Age: 39 Year
  Sex: Female

DRUGS (2)
  1. CAELYX [Suspect]
     Indication: CERVIX CARCINOMA
     Route: 042
  2. CAELYX [Suspect]
     Indication: UTERINE CANCER
     Route: 042

REACTIONS (6)
  - BACK PAIN [None]
  - COLD SWEAT [None]
  - DYSPNOEA [None]
  - INFUSION RELATED REACTION [None]
  - LARYNGEAL OEDEMA [None]
  - RASH [None]
